FAERS Safety Report 5520798-9 (Version None)
Quarter: 2007Q4

REPORT INFORMATION
  Report Type: 
  Country: None (occurrence: None)
  Receive Date: 20071116
  Receipt Date: 20071116
  Transmission Date: 20080405
  Serious: No
  Sender: FDA-Public Use
  Company Number: None

PATIENT
  Age: 61 Year

DRUGS (1)
  1. VANCOMYCIN HCL [Suspect]
     Dosage: IV
     Route: 042
     Dates: end: 20070917

REACTIONS (2)
  - ERYTHEMA [None]
  - PRURITUS [None]
